FAERS Safety Report 14224728 (Version 3)
Quarter: 2019Q3

REPORT INFORMATION
  Report Type: Spontaneous
  Country: PL (occurrence: PL)
  Receive Date: 20171127
  Receipt Date: 20190708
  Transmission Date: 20191004
  Serious: Yes (Death, Other)
  Sender: FDA-Public Use
  Company Number: PL-009507513-1707POL009419

PATIENT
  Age: 60 Year
  Sex: Female

DRUGS (36)
  1. KEYTRUDA [Suspect]
     Active Substance: PEMBROLIZUMAB
     Dosage: 200 MG, Q3W, SECOND CYCLE
     Route: 042
     Dates: start: 20170807
  2. MAGNESIUM SULFATE. [Concomitant]
     Active Substance: MAGNESIUM SULFATE
     Indication: PROPHYLAXIS
     Dosage: 1ST CYCLE: 1 AMPULE, UNK
     Dates: start: 20170717
  3. KEYTRUDA [Suspect]
     Active Substance: PEMBROLIZUMAB
     Indication: TRIPLE NEGATIVE BREAST CANCER
     Dosage: 200 MG, Q3W, FIRST CYCLE
     Route: 042
     Dates: start: 20170717
  4. KEYTRUDA [Suspect]
     Active Substance: PEMBROLIZUMAB
     Dosage: 200 MG, Q3W, THIRD CYCLE
     Route: 042
     Dates: start: 20170828
  5. KEYTRUDA [Suspect]
     Active Substance: PEMBROLIZUMAB
     Dosage: 200 MG, EVERY 4 WEEKS, 6TH CYCLE
     Route: 042
     Dates: start: 20171120
  6. DEXAVEN [Concomitant]
     Active Substance: DEXAMETHASONE
     Dosage: 2ND CYCLE: 4 MG, UNK
     Route: 042
     Dates: start: 20170807
  7. ONDANSETRON [Concomitant]
     Active Substance: ONDANSETRON
     Indication: PROPHYLAXIS
     Dosage: 1ST CYCLE: 4 MG, STRENGTH: 4MG/2ML - PACKAGE-5 AM P.2ML
     Route: 042
     Dates: start: 20170717
  8. ONDANSETRON [Concomitant]
     Active Substance: ONDANSETRON
     Dosage: UNK
     Route: 042
     Dates: start: 20180430
  9. ONDANSETRON [Concomitant]
     Active Substance: ONDANSETRON
     Dosage: UNK
     Route: 042
     Dates: start: 20180521
  10. GEMSOL [Suspect]
     Active Substance: GEMCITABINE HYDROCHLORIDE
     Indication: TRIPLE NEGATIVE BREAST CANCER
     Dosage: 1ST CYCLE: 1960 MG, CONCENTRATE: 100MG/25ML; 1 PHIAL
     Route: 042
     Dates: start: 20170717
  11. GEMSOL [Suspect]
     Active Substance: GEMCITABINE HYDROCHLORIDE
     Dosage: 1200 MG, UNK
     Route: 042
     Dates: start: 20180521
  12. CARBOMEDAC [Concomitant]
     Active Substance: CARBOPLATIN
     Indication: TRIPLE NEGATIVE BREAST CANCER
     Dosage: 1ST CYCLE: 255 MG, STRENGTH ALSO REPORTED AS : AUC 2-255MG; 1 PHIAL
     Route: 042
     Dates: start: 20170717
  13. ONDANSETRON [Concomitant]
     Active Substance: ONDANSETRON
     Dosage: 2ND CYCLE: 4 MG, STRENGTH: 4MG/2ML - PACKAGE-5 AM P.2ML
     Route: 042
     Dates: start: 20170807
  14. MAGNESIUM SULFATE. [Concomitant]
     Active Substance: MAGNESIUM SULFATE
     Dosage: 3RD CYCLE: 1 AMPULE, UNK
     Dates: start: 20170828
  15. GEMSOL [Suspect]
     Active Substance: GEMCITABINE HYDROCHLORIDE
     Dosage: 3RD CYCLE: 1960 MG, CONCENTRATE: 100MG/25ML; 1 PHIAL
     Route: 042
     Dates: start: 20170828
  16. PREDNISONE. [Concomitant]
     Active Substance: PREDNISONE
     Dosage: 5 MG, UNK
     Dates: start: 20170817, end: 20170820
  17. FAYTON [Concomitant]
     Indication: PROPHYLAXIS
     Dosage: 4 MG, STRENGTH: 4MG/5ML; 1 PHIAL
     Route: 042
     Dates: start: 20170717
  18. DEXAVEN [Concomitant]
     Active Substance: DEXAMETHASONE
     Indication: PROPHYLAXIS
     Dosage: 1ST CYCLE: 4 MG, UNK
     Route: 042
     Dates: start: 20170717
  19. DEXAVEN [Concomitant]
     Active Substance: DEXAMETHASONE
     Dosage: 4 MG, UNK
     Route: 042
     Dates: start: 20180521
  20. MAGNESIUM SULFATE. [Concomitant]
     Active Substance: MAGNESIUM SULFATE
     Dosage: 2ND CYCLE: 1 AMPULE, UNK
     Dates: start: 20170807
  21. KEYTRUDA [Suspect]
     Active Substance: PEMBROLIZUMAB
     Dosage: 200 MG, EVERY 4 WEEKS, 4TH CYCLE
     Route: 042
     Dates: start: 20170925
  22. KEYTRUDA [Suspect]
     Active Substance: PEMBROLIZUMAB
     Dosage: 200 MG, Q3W, 14 CYCLE
     Route: 042
     Dates: start: 20180521, end: 2018
  23. GEMSOL [Suspect]
     Active Substance: GEMCITABINE HYDROCHLORIDE
     Dosage: 2ND CYCLE: 1960 MG, CONCENTRATE: 100MG/25ML; 1 PHIAL
     Route: 042
     Dates: start: 20170807
  24. PREDNISONE. [Concomitant]
     Active Substance: PREDNISONE
     Indication: RASH
     Dosage: 10 MG, UNK
     Dates: start: 20170728, end: 20170816
  25. PREDNISONE. [Concomitant]
     Active Substance: PREDNISONE
     Dosage: STARTED DURING 3RD CYCLE OF KEYTRUDA
     Dates: start: 20170829, end: 20170831
  26. DEXAVEN [Concomitant]
     Active Substance: DEXAMETHASONE
     Dosage: 4 MG, UNK
     Route: 042
     Dates: start: 20180430
  27. KEYTRUDA [Suspect]
     Active Substance: PEMBROLIZUMAB
     Dosage: 200 MG, EVERY 4 WEEKS, 5TH CYCLE
     Route: 042
     Dates: start: 20171023
  28. CARBOMEDAC [Concomitant]
     Active Substance: CARBOPLATIN
     Dosage: 140 MG, UNK
     Route: 042
     Dates: start: 20180430
  29. CARBOMEDAC [Concomitant]
     Active Substance: CARBOPLATIN
     Dosage: 2ND CYCLE: 255 MG, STRENGTH ALSO REPORTED AS : AUC 2-255MG; 1 PHIAL
     Route: 042
     Dates: start: 20170807
  30. CARBOMEDAC [Concomitant]
     Active Substance: CARBOPLATIN
     Dosage: 3RD CYCLE: 255 MG, STRENGTH ALSO REPORTED AS : AUC 2-255MG; 1 PHIAL
     Route: 042
     Dates: start: 20170828
  31. CARBOMEDAC [Concomitant]
     Active Substance: CARBOPLATIN
     Dosage: 140 MG, UNK
     Route: 042
     Dates: start: 20180521
  32. KEYTRUDA [Suspect]
     Active Substance: PEMBROLIZUMAB
     Dosage: 200 MG, Q3W, 13 CYCLE
     Route: 042
     Dates: start: 20180430
  33. GEMSOL [Suspect]
     Active Substance: GEMCITABINE HYDROCHLORIDE
     Dosage: 1200 MG, UNK
     Route: 042
     Dates: start: 20180430
  34. FAYTON [Concomitant]
     Dosage: 4 MG, UNK
     Route: 042
     Dates: start: 20180430
  35. DEXAVEN [Concomitant]
     Active Substance: DEXAMETHASONE
     Dosage: 3RD CYCLE: 4 MG, UNK
     Route: 042
     Dates: start: 20170828
  36. ONDANSETRON [Concomitant]
     Active Substance: ONDANSETRON
     Dosage: 3RD CYCLE: 4 MG, STRENGTH: 4MG/2ML - PACKAGE-5 AM P.2ML
     Route: 042
     Dates: start: 20170828

REACTIONS (25)
  - Neutrophil count decreased [Recovering/Resolving]
  - Rash generalised [Recovered/Resolved]
  - Rash papular [Recovered/Resolved]
  - Rash pruritic [Recovered/Resolved]
  - Malignant neoplasm progression [Unknown]
  - Ocular hyperaemia [Recovered/Resolved]
  - Rash [Recovered/Resolved]
  - Diarrhoea [Recovered/Resolved]
  - Skin discolouration [Recovering/Resolving]
  - Erythema [Recovered/Resolved]
  - Rash erythematous [Recovered/Resolved]
  - Pyrexia [Recovered/Resolved]
  - Diarrhoea [Recovered/Resolved]
  - Drug ineffective [Unknown]
  - Cough [Recovered/Resolved]
  - Off label use [Unknown]
  - Inappropriate schedule of product administration [Unknown]
  - Death [Fatal]
  - Sneezing [Recovered/Resolved]
  - Malignant neoplasm progression [Unknown]
  - Palmar erythema [Recovered/Resolved]
  - Pleural effusion [Unknown]
  - Paraesthesia oral [Recovered/Resolved]
  - Dyspnoea [Recovered/Resolved]
  - Rash [Recovered/Resolved]

NARRATIVE: CASE EVENT DATE: 2017
